FAERS Safety Report 19717549 (Version 2)
Quarter: 2021Q3

REPORT INFORMATION
  Report Type: Spontaneous
  Country: BR (occurrence: BR)
  Receive Date: 20210818
  Receipt Date: 20210902
  Transmission Date: 20211014
  Serious: No
  Sender: FDA-Public Use
  Company Number: BR-ASTRAZENECA-2021A679666

PATIENT
  Age: 55 Year
  Sex: Female

DRUGS (10)
  1. OMEGA 3 [Concomitant]
     Active Substance: OMEGA-3 FATTY ACIDS
  2. ORLISTAT. [Concomitant]
     Active Substance: ORLISTAT
  3. ESCITALOPRAN [Concomitant]
  4. ENALAPRIL MALEATE. [Concomitant]
     Active Substance: ENALAPRIL MALEATE
  5. CIPROFIBRATE [Concomitant]
     Active Substance: CIPROFIBRATE
  6. XIGDUO XR [Suspect]
     Active Substance: DAPAGLIFLOZIN PROPANEDIOL\METFORMIN HYDROCHLORIDE
     Indication: DIABETES MELLITUS
     Dosage: 5 MG + 1000 MG, ONE TABLET IN THE MORNING AND ONE IN THE EVENING
     Route: 048
     Dates: start: 2019
  7. ROSUVASTATIN. [Suspect]
     Active Substance: ROSUVASTATIN
     Indication: BLOOD CHOLESTEROL
     Route: 048
  8. ZETRON XL [Concomitant]
     Indication: CEREBROVASCULAR ACCIDENT
  9. NESINA PIO [Concomitant]
     Active Substance: ALOGLIPTIN BENZOATE\PIOGLITAZONE HYDROCHLORIDE
  10. ASPIRINA PREVENT [Concomitant]
     Active Substance: ASPIRIN

REACTIONS (2)
  - Weight decreased [Not Recovered/Not Resolved]
  - Off label use [Not Recovered/Not Resolved]

NARRATIVE: CASE EVENT DATE: 2019
